FAERS Safety Report 11171766 (Version 1)
Quarter: 2015Q2

REPORT INFORMATION
  Report Type: Spontaneous
  Country: US (occurrence: None)
  Receive Date: 20150605
  Receipt Date: 20150605
  Transmission Date: 20150821
  Serious: No
  Sender: FDA-Public Use
  Company Number: None

PATIENT
  Age: 69 Year
  Sex: Female
  Weight: 60.33 kg

DRUGS (2)
  1. ARIMIDEX [Suspect]
     Active Substance: ANASTROZOLE
     Indication: BREAST CANCER
     Route: 048
  2. ARIMIDEX [Suspect]
     Active Substance: ANASTROZOLE
     Indication: MASTECTOMY
     Route: 048

REACTIONS (10)
  - Diarrhoea [None]
  - Asthenia [None]
  - Retching [None]
  - Dizziness [None]
  - Fall [None]
  - Feeling hot [None]
  - Vomiting [None]
  - Nausea [None]
  - Fatigue [None]
  - Cold sweat [None]

NARRATIVE: CASE EVENT DATE: 20150531
